FAERS Safety Report 19432424 (Version 2)
Quarter: 2021Q3

REPORT INFORMATION
  Report Type: Report from Study
  Country: None (occurrence: US)
  Receive Date: 20210617
  Receipt Date: 20210704
  Transmission Date: 20211014
  Serious: No
  Sender: FDA-Public Use
  Company Number: US-ABBVIE-21K-163-3908908-00

PATIENT
  Sex: Female
  Weight: 136.2 kg

DRUGS (1)
  1. ORILISSA [Suspect]
     Active Substance: ELAGOLIX SODIUM
     Indication: ENDOMETRIOSIS
     Route: 048
     Dates: start: 20210430

REACTIONS (15)
  - Polymenorrhoea [Not Recovered/Not Resolved]
  - Duodenogastric reflux [Recovering/Resolving]
  - Myalgia [Not Recovered/Not Resolved]
  - Joint swelling [Recovering/Resolving]
  - Arthralgia [Recovered/Resolved]
  - Swelling [Recovered/Resolved]
  - Abdominal pain upper [Recovering/Resolving]
  - Product packaging difficult to open [Not Recovered/Not Resolved]
  - Migraine [Recovered/Resolved]
  - Hepatobiliary disease [Recovering/Resolving]
  - Headache [Recovered/Resolved]
  - Diarrhoea [Not Recovered/Not Resolved]
  - Migraine [Not Recovered/Not Resolved]
  - Fluid retention [Recovering/Resolving]
  - Tension headache [Not Recovered/Not Resolved]

NARRATIVE: CASE EVENT DATE: 2021
